FAERS Safety Report 7941906-6 (Version None)
Quarter: 2011Q4

REPORT INFORMATION
  Report Type: 
  Country: None (occurrence: None)
  Receive Date: 20111128
  Receipt Date: 20111114
  Transmission Date: 20120403
  Serious: Yes (Death, Life-Threatening, Hospitalization)
  Sender: FDA-Public Use
  Company Number: US-PFIZER INC-199967914PHANOV

PATIENT
  Sex: Male

DRUGS (17)
  1. CEPHALEXIN [Concomitant]
  2. OCEAN NASAL SPRAY [Concomitant]
  3. GENOTROPIN [Suspect]
     Indication: MALNUTRITION
     Dosage: 1.5 MG, 1X/DAY
     Route: 058
     Dates: start: 19990120, end: 19990217
  4. CLARITHROMYCIN [Concomitant]
  5. MICONAZOLE [Concomitant]
  6. VICON FORTE [Concomitant]
  7. ETHAMBUTOL [Concomitant]
  8. LOPERAMIDE HYDROCHLORIDE [Concomitant]
  9. CALCIUM [Concomitant]
  10. FERROUS SULFATE TAB [Concomitant]
  11. FOLIC ACID [Concomitant]
  12. ACETAMINOPHEN [Concomitant]
  13. RANITIDINE [Concomitant]
  14. RIFAMPIN [Concomitant]
  15. NYSTATIN [Concomitant]
  16. DIPHENHYDRAMINE [Concomitant]
  17. MUPIROCIN [Concomitant]

REACTIONS (3)
  - DEATH [None]
  - SEPSIS [None]
  - MULTI-ORGAN FAILURE [None]
